FAERS Safety Report 20455202 (Version 2)
Quarter: 2022Q1

REPORT INFORMATION
  Report Type: Spontaneous
  Country: JP (occurrence: JP)
  Receive Date: 20220210
  Receipt Date: 20220218
  Transmission Date: 20220423
  Serious: Yes (Other)
  Sender: FDA-Public Use
  Company Number: JP-PFIZER INC-202200186010

PATIENT
  Age: 69 Year
  Sex: Male

DRUGS (4)
  1. OXALIPLATIN [Suspect]
     Active Substance: OXALIPLATIN
     Indication: Colon cancer metastatic
     Dosage: 42 MG/M2
  2. LEVOLEUCOVORIN CALCIUM [Suspect]
     Active Substance: LEVOLEUCOVORIN CALCIUM
     Indication: Colon cancer metastatic
     Dosage: 100 MG/M2 (2H)
  3. FLUOROURACIL [Suspect]
     Active Substance: FLUOROURACIL
     Indication: Colon cancer metastatic
     Dosage: 200 MG/M2
     Route: 040
  4. FLUOROURACIL [Suspect]
     Active Substance: FLUOROURACIL
     Dosage: 1200 MG/M2 (46H ,EVERY 4 WEEKS)

REACTIONS (2)
  - Altered state of consciousness [Recovering/Resolving]
  - Hyperammonaemia [Recovering/Resolving]
